FAERS Safety Report 7581380-5 (Version None)
Quarter: 2011Q2

REPORT INFORMATION
  Report Type: 
  Country: None (occurrence: None)
  Receive Date: 20110629
  Receipt Date: 20110622
  Transmission Date: 20111010
  Serious: Yes (Hospitalization)
  Sender: FDA-Public Use
  Company Number: CZ-CEPHALON-2011002924

PATIENT
  Sex: Female
  Weight: 67 kg

DRUGS (12)
  1. VASOCARDIN [Concomitant]
  2. HELICID [Concomitant]
     Dates: start: 20110124
  3. ONDANSETRON [Concomitant]
     Dates: start: 20110208
  4. ESPUMISAN [Concomitant]
     Dates: start: 20110404
  5. DEXAMETHASONE [Suspect]
     Indication: MULTIPLE MYELOMA
     Route: 048
     Dates: start: 20110124
  6. ZOVIRAX [Concomitant]
     Dates: start: 20110124
  7. PRESID [Concomitant]
  8. LOZAP [Concomitant]
  9. AUGMENTIN '125' [Concomitant]
     Dates: start: 20110429, end: 20110505
  10. BENDAMUSTINE HCL [Suspect]
     Indication: MULTIPLE MYELOMA
     Route: 042
     Dates: start: 20110124
  11. BORTEZOMIB [Suspect]
     Indication: MULTIPLE MYELOMA
     Route: 042
     Dates: start: 20110124
  12. SUMETROLIM [Concomitant]
     Dates: start: 20110124

REACTIONS (1)
  - CEREBRAL ISCHAEMIA [None]
